FAERS Safety Report 19927362 (Version 1)
Quarter: 2021Q4

REPORT INFORMATION
  Report Type: Report from Study
  Country: NL (occurrence: NL)
  Receive Date: 20211007
  Receipt Date: 20211007
  Transmission Date: 20220303
  Serious: Yes (Other)
  Sender: FDA-Public Use
  Company Number: NL-SA-SAC00000000367525

PATIENT

DRUGS (14)
  1. PRALUENT [Suspect]
     Active Substance: ALIROCUMAB
     Indication: Primary hypercholesterolaemia
     Dosage: 75 MG/ML, QOW
     Dates: start: 20170626, end: 202011
  2. PRALUENT [Suspect]
     Active Substance: ALIROCUMAB
     Dosage: 75 MG/ML, QOW
  3. ENTRESTO [Concomitant]
     Active Substance: SACUBITRIL\VALSARTAN
  4. TAMSULOSIN HYDROCHLORIDE [Concomitant]
     Active Substance: TAMSULOSIN HYDROCHLORIDE
  5. PANTOPRAZOLE [Concomitant]
     Active Substance: PANTOPRAZOLE
  6. EZETIMIBE [Concomitant]
     Active Substance: EZETIMIBE
  7. CARBASPIRIN CALCIUM [Concomitant]
     Active Substance: CARBASPIRIN CALCIUM
  8. BISOPROLOL FUMARATE [Concomitant]
     Active Substance: BISOPROLOL FUMARATE
  9. CHOLECALCIFEROL [Concomitant]
     Active Substance: CHOLECALCIFEROL
     Dosage: TABL 800IE 90 ST 1.1T
  10. OXAZEPAM [Concomitant]
     Active Substance: OXAZEPAM
     Dosage: 60 ST 1Z1T
  11. VITAMIN D NOS [Concomitant]
     Active Substance: VITAMIN D NOS
  12. BISOPROLOL [Concomitant]
     Active Substance: BISOPROLOL
  13. ZOLADEX [Concomitant]
     Active Substance: GOSERELIN ACETATE
  14. TACAL D3 [Concomitant]

REACTIONS (4)
  - Prostate cancer [Unknown]
  - Prostatic specific antigen increased [Unknown]
  - Cardiac operation [Recovering/Resolving]
  - Off label use [Unknown]

NARRATIVE: CASE EVENT DATE: 20201111
